FAERS Safety Report 4647438-5 (Version None)
Quarter: 2005Q2

REPORT INFORMATION
  Report Type: 
  Country: None (occurrence: None)
  Receive Date: 20050428
  Receipt Date: 20050418
  Transmission Date: 20051028
  Serious: Yes (Hospitalization)
  Sender: FDA-Public Use
  Company Number: US-JNJFOC-20050404673

PATIENT
  Sex: Female
  Weight: 121.56 kg

DRUGS (5)
  1. FENTANYL [Suspect]
     Route: 062
  2. FENTANYL [Suspect]
     Route: 062
  3. FENTANYL [Suspect]
     Route: 062
  4. FENTANYL [Suspect]
     Indication: CANCER PAIN
     Route: 062
  5. OXYCODONE [Concomitant]
     Indication: PAIN
     Dosage: ONE TO THREE TABLETS EVERY 8 HOURS
     Route: 049

REACTIONS (2)
  - LOSS OF CONSCIOUSNESS [None]
  - MEDICATION ERROR [None]
